FAERS Safety Report 16664096 (Version 1)
Quarter: 2019Q3

REPORT INFORMATION
  Report Type: Report from Study
  Country: None (occurrence: TW)
  Receive Date: 20190802
  Receipt Date: 20190802
  Transmission Date: 20191004
  Serious: Yes (Other)
  Sender: FDA-Public Use
  Company Number: TW-BAUSCH-BL-2019-021885

PATIENT
  Sex: Male

DRUGS (2)
  1. PREDNISOLONE. [Suspect]
     Active Substance: PREDNISOLONE
     Indication: BEHCET^S SYNDROME
     Dosage: DISCONTINUED AFTER 6 MONTHS (DURATION OF STEROID USE BEFORE ATNF 5.8 YEARS)
     Route: 048
  2. 5-ASA [Suspect]
     Active Substance: MESALAMINE
     Indication: BEHCET^S SYNDROME
     Dosage: DISCONTINUED AFTER 6 MONTHS
     Route: 065

REACTIONS (3)
  - Drug dependence [Unknown]
  - Nervous system disorder [Unknown]
  - Treatment noncompliance [Unknown]
